FAERS Safety Report 4512167-5 (Version None)
Quarter: 2004Q4

REPORT INFORMATION
  Report Type: 
  Country: None (occurrence: None)
  Receive Date: 20041123
  Receipt Date: 20041110
  Transmission Date: 20050328
  Serious: Yes (Hospitalization)
  Sender: FDA-Public Use
  Company Number: 2004-UK-01186UK

PATIENT
  Age: 79 Year
  Sex: Male

DRUGS (6)
  1. TIOTROPIUM (00015/0190/A) (TIOTROPIUM BROMIDE) (KAI) [Suspect]
     Indication: CHRONIC OBSTRUCTIVE AIRWAYS DISEASE
     Dosage: 18 MCG (18 MCG) IH
     Route: 055
     Dates: start: 20031002
  2. RESTEX (MADOPAR) (NR) [Concomitant]
  3. SALMETEROL XINAFOATE (SALMETEROL XINAFOATE) (NR) [Concomitant]
  4. PREDNISOLONE (NR) [Concomitant]
  5. PREDNISOLONE SODIUM SUCCINATE (PREDNISOLONE SODIUM SUCINATE) (NR) [Concomitant]
  6. PREDNISOLONE ACETATE (PREDNISOLONE ACETATE) (NR) [Concomitant]

REACTIONS (1)
  - DEEP VEIN THROMBOSIS [None]
